FAERS Safety Report 10153013 (Version 6)
Quarter: 2014Q2

REPORT INFORMATION
  Report Type: Spontaneous
  Country: GB (occurrence: GB)
  Receive Date: 20140505
  Receipt Date: 20140625
  Transmission Date: 20141212
  Serious: Yes (Hospitalization)
  Sender: FDA-Public Use
  Company Number: GB-PFIZER INC-2014122248

PATIENT
  Age: 4 Year
  Sex: Male

DRUGS (9)
  1. PHENYTOIN [Suspect]
     Dosage: 75 MG, 2X/DAY 50 MG TABLETS
     Route: 048
  2. SPIRONOLACTONE [Suspect]
     Dosage: 15 MG, 2X/DAY, 30 MILLIGRAM PER DAY; 25MG TABLETS
     Route: 048
  3. LEVETIRACETAM [Suspect]
     Dosage: 500 MG, 2X/DAY 1000 MILLIGRAM PER DAY
     Route: 048
  4. METOPROLOL TARTRATE [Suspect]
     Dosage: 12.5 MG, 2X/DAY 25 MILLIGRAM PER DAY; 50MG TABLETS
     Route: 048
  5. BACLOFEN [Suspect]
     Dosage: 6 MG, 4X/DAY 24 MILLIGRAM PER DAY; 10MG TABLETS
     Route: 048
  6. BUMETANIDE [Suspect]
     Dosage: 500 UG, 3X/DAY 1500 MG PER DAY, 1MG TABLETS
     Route: 048
  7. CAPTOPRIL [Suspect]
     Dosage: 15 MG, 3X/DAY
     Route: 048
  8. DIAZEPAM [Suspect]
     Dosage: 3 MG, 1X/DAY 3 MILLIGRAM PER DAY; 2MG TABLETS.
     Route: 048
  9. EPILIM [Suspect]
     Dosage: 50 MG, 2X/DAY 100 MILLIGRAM PER DAY 100MG TABLETS
     Route: 048

REACTIONS (3)
  - Blood ketone body increased [Unknown]
  - Drug administered to patient of inappropriate age [Unknown]
  - Reaction to drug excipients [Unknown]
